FAERS Safety Report 4872197-0 (Version None)
Quarter: 2006Q1

REPORT INFORMATION
  Report Type: 
  Country: None (occurrence: None)
  Receive Date: 20060104
  Receipt Date: 20050523
  Transmission Date: 20060701
  Serious: Yes (Death, Hospitalization, Other)
  Sender: FDA-Public Use
  Company Number: US-BRISTOL-MYERS SQUIBB COMPANY-12979696

PATIENT
  Age: 70 Year
  Sex: Male

DRUGS (8)
  1. CARBOPLATIN [Suspect]
     Indication: LUNG CANCER METASTATIC
     Route: 042
     Dates: start: 20050426, end: 20050426
  2. DOCETAXEL [Suspect]
     Indication: LUNG CANCER METASTATIC
     Route: 042
     Dates: start: 20050426, end: 20050426
  3. ATENOLOL [Concomitant]
     Dates: start: 19900101
  4. WARFARIN [Concomitant]
     Dates: start: 20000101
  5. NORVASC [Concomitant]
     Dates: start: 20050301
  6. LIPITOR [Concomitant]
     Dates: start: 19950101
  7. FOLIC ACID [Concomitant]
     Dates: start: 20000101
  8. STARLIX [Concomitant]
     Dates: start: 20050301

REACTIONS (15)
  - ALPHA HAEMOLYTIC STREPTOCOCCAL INFECTION [None]
  - BLOOD UREA INCREASED [None]
  - CARDIO-RESPIRATORY ARREST [None]
  - CLOSTRIDIUM COLITIS [None]
  - CONFUSIONAL STATE [None]
  - DEHYDRATION [None]
  - DIARRHOEA [None]
  - HYPOTENSION [None]
  - ILEUS [None]
  - MALIGNANT NEOPLASM PROGRESSION [None]
  - MENTAL STATUS CHANGES [None]
  - PANCYTOPENIA [None]
  - PSEUDOMONAS INFECTION [None]
  - SEPSIS [None]
  - SMALL INTESTINAL OBSTRUCTION [None]
